FAERS Safety Report 4272997-4 (Version None)
Quarter: 2004Q1

REPORT INFORMATION
  Report Type: 
  Country: None (occurrence: None)
  Receive Date: 20040114
  Receipt Date: 20040107
  Transmission Date: 20041129
  Serious: Yes (Hospitalization)
  Sender: FDA-Public Use
  Company Number: FR-JNJFOC-2004100960

PATIENT
  Age: 48 Year
  Sex: Female

DRUGS (1)
  1. DURAGESIC [Suspect]
     Dosage: 25 UG/HR, 1 IN 3 DAY, TRANSDERMAL
     Route: 062
     Dates: start: 20020604, end: 20020605

REACTIONS (5)
  - ANAPHYLACTIC SHOCK [None]
  - ANGIONEUROTIC OEDEMA [None]
  - DYSPHONIA [None]
  - DYSPNOEA [None]
  - SENSATION OF FOREIGN BODY [None]
